FAERS Safety Report 9053373 (Version 1)
Quarter: 2013Q1

REPORT INFORMATION
  Report Type: Spontaneous
  Country: US (occurrence: US)
  Receive Date: 20130208
  Receipt Date: 20130208
  Transmission Date: 20140127
  Serious: Yes (Life-Threatening, Hospitalization)
  Sender: FDA-Public Use
  Company Number: US-ACCORD-016264

PATIENT
  Age: 44 Year
  Sex: Male

DRUGS (2)
  1. GEMCITABINE [Suspect]
     Indication: PANCREATIC CARCINOMA METASTATIC
     Dosage: ON DAYS 1, 8, AND 15 OF EACH?4-WEEK CYCLE
  2. CISPLATIN [Suspect]
     Indication: PANCREATIC CARCINOMA METASTATIC
     Dosage: ON DAYS 1 AND 15, 4-WEEK CYCLE

REACTIONS (4)
  - Hypertension [Recovered/Resolved]
  - Aortic dissection [Recovering/Resolving]
  - Pleural effusion [Recovering/Resolving]
  - Atelectasis [Recovering/Resolving]
